FAERS Safety Report 7638461-7 (Version None)
Quarter: 2011Q3

REPORT INFORMATION
  Report Type: 
  Country: None (occurrence: None)
  Receive Date: 20110727
  Receipt Date: 20110715
  Transmission Date: 20111222
  Serious: Yes (Hospitalization)
  Sender: FDA-Public Use
  Company Number: PL-SANOFI-AVENTIS-2011SA045282

PATIENT
  Age: 56 Year
  Sex: Male

DRUGS (4)
  1. MULTAQ [Suspect]
     Indication: ARRHYTHMIA
     Route: 048
     Dates: start: 20110701, end: 20110701
  2. SINTROM [Concomitant]
  3. INDAPAMIDE/PERINDOPRIL ERBUMINE [Concomitant]
  4. CORDARONE [Concomitant]
     Route: 065

REACTIONS (10)
  - DIARRHOEA [None]
  - ASTHENIA [None]
  - DYSPNOEA [None]
  - PYREXIA [None]
  - CHROMATURIA [None]
  - ARRHYTHMIA [None]
  - CONTUSION [None]
  - RENAL PAIN [None]
  - NAUSEA [None]
  - HEPATIC PAIN [None]
